FAERS Safety Report 23355827 (Version 1)
Quarter: 2024Q1

REPORT INFORMATION
  Report Type: Spontaneous
  Country: US (occurrence: US)
  Receive Date: 20240102
  Receipt Date: 20240102
  Transmission Date: 20240410
  Serious: Yes (Other)
  Sender: FDA-Public Use
  Company Number: US-AMGEN-USASP2023231820

PATIENT
  Age: 50 Year
  Sex: Female

DRUGS (20)
  1. OTEZLA [Suspect]
     Active Substance: APREMILAST
     Indication: Psoriatic arthropathy
     Dosage: 30 MILLIGRAM, BID
     Route: 048
  2. FDGARD [Concomitant]
  3. FISH OIL [Concomitant]
     Active Substance: FISH OIL
  4. FLUOXETINE HYDROCHLORIDE [Concomitant]
     Active Substance: FLUOXETINE HYDROCHLORIDE
  5. GLUCOSAMINE/MSM COMPLEX [Concomitant]
  6. LISINOPRIL [Concomitant]
     Active Substance: LISINOPRIL
  7. SULFASALAZINE [Concomitant]
     Active Substance: SULFASALAZINE
  8. AMLODIPINE BESYLATE [Concomitant]
     Active Substance: AMLODIPINE BESYLATE
  9. LOSARTAN POTASSIUM ACCORD [Concomitant]
  10. FLONASE ALLERGY RELIEF [Concomitant]
     Active Substance: FLUTICASONE PROPIONATE
  11. XYZAL ALLERGY 24HR [Concomitant]
     Active Substance: LEVOCETIRIZINE DIHYDROCHLORIDE
  12. ALBUTEROL [Concomitant]
     Active Substance: ALBUTEROL
  13. TRELEGY ELLIPTA [Concomitant]
     Active Substance: FLUTICASONE FUROATE\UMECLIDINIUM BROMIDE\VILANTEROL TRIFENATATE
     Dosage: UNK
  14. LEVOTHYROXINE SODIUM [Concomitant]
     Active Substance: LEVOTHYROXINE SODIUM
     Dosage: UNK
  15. VITAMIN D [Concomitant]
     Active Substance: VITAMIN D NOS
     Dosage: UNK
  16. CARVEDILOL [Concomitant]
     Active Substance: CARVEDILOL
     Dosage: UNK
  17. DICLOFENAC [Concomitant]
     Active Substance: DICLOFENAC
     Dosage: UNK
  18. FOLIC ACID [Concomitant]
     Active Substance: FOLIC ACID
     Dosage: UNK
  19. SULINDAC [Concomitant]
     Active Substance: SULINDAC
     Dosage: UNK
  20. COSENTYX [Concomitant]
     Active Substance: SECUKINUMAB
     Dosage: UNK

REACTIONS (2)
  - Nasal operation [Unknown]
  - Hysterectomy [Unknown]
